FAERS Safety Report 8696729 (Version 2)
Quarter: 2013Q1

REPORT INFORMATION
  Report Type: Spontaneous
  Country: US (occurrence: US)
  Receive Date: 20120801
  Receipt Date: 20130128
  Transmission Date: 20140127
  Serious: Yes (Hospitalization)
  Sender: FDA-Public Use
  Company Number: US-BAYER-2012-073900

PATIENT
  Age: 20 Year
  Sex: Female
  Weight: 67.57 kg

DRUGS (15)
  1. BEYAZ [Suspect]
     Indication: ACNE
     Dosage: UNK
     Dates: start: 201112, end: 201205
  2. YAZ [Suspect]
  3. DEPO-PROVERA [Concomitant]
  4. HYDROCODONE/ACETAMINOPHEN [Concomitant]
     Dosage: 7.5 - 500 MG
     Route: 048
     Dates: start: 20120202
  5. OXYCODONE W/PARACETAMOL [Concomitant]
     Dosage: 5 - 500 MG
     Route: 048
     Dates: start: 20120206
  6. OXYCODONE W/PARACETAMOL [Concomitant]
     Dosage: UNK
     Dates: start: 20120507
  7. AMOXICILLIN [Concomitant]
     Dosage: 500 MG, UNK
     Route: 048
     Dates: start: 20120206
  8. PROMETHAZINE [Concomitant]
     Dosage: 25 MG, UNK
     Route: 048
     Dates: start: 20120210
  9. MEPERIDINE [Concomitant]
     Dosage: 50 MG, UNK
     Route: 048
     Dates: start: 20120210
  10. FLUCONAZOLE [Concomitant]
     Dosage: 150 MG, UNK
     Route: 048
     Dates: start: 20120314
  11. METRONIDAZOLE [Concomitant]
     Dosage: 250 MG, UNK
     Route: 048
     Dates: start: 20120314
  12. PERCOCET [Concomitant]
  13. MIRALAX [Concomitant]
  14. MOTRIN [Concomitant]
  15. MULTIVITAMIN [Concomitant]

REACTIONS (7)
  - Pulmonary embolism [Recovered/Resolved with Sequelae]
  - Pain [Recovered/Resolved with Sequelae]
  - Injury [Recovered/Resolved with Sequelae]
  - General physical health deterioration [Recovered/Resolved with Sequelae]
  - Emotional distress [None]
  - Anxiety [None]
  - Pain [None]
